FAERS Safety Report 7843573-9 (Version None)
Quarter: 2011Q4

REPORT INFORMATION
  Report Type: 
  Country: None (occurrence: None)
  Receive Date: 20111025
  Receipt Date: 20111019
  Transmission Date: 20120403
  Serious: Yes (Death, Hospitalization, Other)
  Sender: FDA-Public Use
  Company Number: US-CELGENEUS-163-21880-11082504

PATIENT
  Sex: Female
  Weight: 52.21 kg

DRUGS (5)
  1. REVLIMID [Suspect]
     Dosage: 10 MILLIGRAM
     Route: 048
     Dates: start: 20110601, end: 20110801
  2. REVLIMID [Suspect]
     Indication: MULTIPLE MYELOMA
     Dosage: 25 MILLIGRAM
     Route: 048
     Dates: start: 20100201
  3. ZOCOR [Concomitant]
     Route: 065
  4. ACTOS [Concomitant]
     Route: 065
  5. NIFEDIPINE [Concomitant]
     Indication: HYPERTENSION
     Route: 065

REACTIONS (1)
  - SEPSIS [None]
